FAERS Safety Report 4372899-9 (Version None)
Quarter: 2004Q2

REPORT INFORMATION
  Report Type: 
  Country: None (occurrence: None)
  Receive Date: 20040603
  Receipt Date: 20040525
  Transmission Date: 20050107
  Serious: No
  Sender: FDA-Public Use
  Company Number: F01200301339

PATIENT
  Age: 60 Year
  Sex: Male

DRUGS (4)
  1. XATRAL - (ALFUZOSIN) - TABLET PR - 10 MG [Suspect]
     Indication: BENIGN PROSTATIC HYPERPLASIA
     Dosage: 10 MG OD
     Route: 048
     Dates: start: 20021004, end: 20031014
  2. LIPITOR [Concomitant]
  3. BECLOVENT (BECLOMETASONE DIPROPIONATE) [Concomitant]
  4. METOPROLOL TARTRATE [Concomitant]

REACTIONS (1)
  - PROSTATE CANCER [None]
